FAERS Safety Report 23900880 (Version 1)
Quarter: 2024Q2

REPORT INFORMATION
  Report Type: Spontaneous
  Country: US (occurrence: None)
  Receive Date: 20240526
  Receipt Date: 20240526
  Transmission Date: 20240716
  Serious: No
  Sender: FDA-Public Use
  Company Number: US-ROCHE-3485000

PATIENT
  Sex: Female
  Weight: 117 kg

DRUGS (2)
  1. OCREVUS [Suspect]
     Active Substance: OCRELIZUMAB
     Indication: Relapsing-remitting multiple sclerosis
     Route: 042
     Dates: start: 202206
  2. XOLAIR [Suspect]
     Active Substance: OMALIZUMAB
     Indication: Mast cell activation syndrome
     Route: 065
     Dates: start: 2021

REACTIONS (3)
  - Light chain analysis increased [Not Recovered/Not Resolved]
  - Off label use [Unknown]
  - Light chain analysis abnormal [Not Recovered/Not Resolved]

NARRATIVE: CASE EVENT DATE: 20210101
